FAERS Safety Report 15631493 (Version 2)
Quarter: 2018Q4

REPORT INFORMATION
  Report Type: Spontaneous
  Country: US (occurrence: US)
  Receive Date: 20181119
  Receipt Date: 20181231
  Transmission Date: 20190205
  Serious: No
  Sender: FDA-Public Use
  Company Number: US-TEVA-2018-US-978097

PATIENT
  Sex: Female
  Weight: 136 kg

DRUGS (14)
  1. ENTRESTO [Concomitant]
     Active Substance: SACUBITRIL\VALSARTAN
  2. TOPIRAMATE. [Concomitant]
     Active Substance: TOPIRAMATE
  3. CARVEDILOL. [Concomitant]
     Active Substance: CARVEDILOL
  4. LEVORA [Concomitant]
     Active Substance: ETHINYL ESTRADIOL\LEVONORGESTREL
  5. MECLIZINE [Concomitant]
     Active Substance: MECLIZINE HYDROCHLORIDE
  6. FUROSEMIDE. [Concomitant]
     Active Substance: FUROSEMIDE
  7. SERTRALINE [Concomitant]
     Active Substance: SERTRALINE HYDROCHLORIDE
  8. NORTRIPTYLINE [Concomitant]
     Active Substance: NORTRIPTYLINE
  9. LEVOTHYROXINE. [Concomitant]
     Active Substance: LEVOTHYROXINE
  10. TOVIAZ [Concomitant]
     Active Substance: FESOTERODINE FUMARATE
  11. PROPAFENONE. [Concomitant]
     Active Substance: PROPAFENONE
  12. MONTELUKAST [Concomitant]
     Active Substance: MONTELUKAST SODIUM
  13. AJOVY [Suspect]
     Active Substance: FREMANEZUMAB-VFRM
     Indication: HEADACHE
     Dates: start: 20181028
  14. ROSUVASTATIN. [Concomitant]
     Active Substance: ROSUVASTATIN

REACTIONS (4)
  - Rash [Unknown]
  - Pruritus [Unknown]
  - Infusion site erythema [Unknown]
  - Injection site urticaria [Unknown]
